FAERS Safety Report 16732035 (Version 1)
Quarter: 2019Q3

REPORT INFORMATION
  Report Type: Spontaneous
  Country: US (occurrence: US)
  Receive Date: 20190822
  Receipt Date: 20190822
  Transmission Date: 20191005
  Serious: Yes (Hospitalization, Other)
  Sender: FDA-Public Use
  Company Number: US-SHIRE-US201923686

PATIENT
  Sex: Female
  Weight: 88.44 kg

DRUGS (1)
  1. GATTEX [Suspect]
     Active Substance: TEDUGLUTIDE\WATER
     Indication: SHORT-BOWEL SYNDROME
     Dosage: 0.23 MILLILITER, 1X/DAY:QD, UNDER THE SKIN
     Route: 050

REACTIONS (2)
  - Hospitalisation [Unknown]
  - Renal failure [Unknown]
